FAERS Safety Report 10019082 (Version 1)
Quarter: 2014Q1

REPORT INFORMATION
  Report Type: Spontaneous
  Country: US (occurrence: None)
  Receive Date: 20140314
  Receipt Date: 20140314
  Transmission Date: 20141002
  Serious: Yes (Life-Threatening, Hospitalization)
  Sender: FDA-Public Use
  Company Number: None

PATIENT
  Age: 8 Year
  Sex: Male
  Weight: 22 kg

DRUGS (3)
  1. LAMOTRIGINE [Suspect]
     Indication: EPILEPSY
     Route: 048
     Dates: start: 20131230, end: 20140110
  2. DEPAKENE [Concomitant]
  3. KLONOPIN [Concomitant]

REACTIONS (4)
  - Rash [None]
  - Urticaria [None]
  - Skin exfoliation [None]
  - Toxic epidermal necrolysis [None]
